FAERS Safety Report 6575814-2 (Version None)
Quarter: 2010Q1

REPORT INFORMATION
  Report Type: 
  Country: None (occurrence: None)
  Receive Date: 20100208
  Receipt Date: 20100208
  Transmission Date: 20100710
  Serious: Yes (Hospitalization)
  Sender: FDA-Public Use
  Company Number: None

PATIENT
  Sex: Female

DRUGS (1)
  1. SIMPONI [Suspect]
     Indication: RHEUMATOID ARTHRITIS
     Dosage: 50 MG EVERY MONTH SQ
     Route: 058
     Dates: start: 20091111, end: 20091206

REACTIONS (2)
  - CELLULITIS [None]
  - PANCREATITIS [None]
